FAERS Safety Report 9615009 (Version 2)
Quarter: 2013Q4

REPORT INFORMATION
  Report Type: Report from Study
  Country: FR (occurrence: FR)
  Receive Date: 20131011
  Receipt Date: 20131017
  Transmission Date: 20140711
  Serious: Yes (Hospitalization)
  Sender: FDA-Public Use
  Company Number: FR-SA-2013SA097919

PATIENT
  Age: 80 Year
  Sex: Male
  Weight: 87.5 kg

DRUGS (16)
  1. CABAZITAXEL [Suspect]
     Indication: PROSTATE CANCER METASTATIC
     Route: 042
     Dates: start: 20121108, end: 20121108
  2. CABAZITAXEL [Suspect]
     Indication: PROSTATE CANCER METASTATIC
     Route: 042
     Dates: start: 20130517, end: 20130517
  3. PREDNISONE [Suspect]
     Indication: PROSTATE CANCER METASTATIC
     Route: 048
     Dates: start: 20121108, end: 20130613
  4. NEBILOX [Concomitant]
     Route: 048
  5. COVERSYL [Concomitant]
     Route: 048
  6. LASILIX [Concomitant]
     Route: 048
     Dates: start: 2012
  7. ASASANTIN [Concomitant]
     Route: 048
  8. OXYNORM [Concomitant]
     Route: 048
     Dates: start: 2012
  9. OXYCONTIN [Concomitant]
     Route: 048
     Dates: start: 2012
  10. FORLAX [Concomitant]
     Route: 048
     Dates: start: 2012, end: 20130613
  11. PANTOPRAZOLE [Concomitant]
     Route: 048
     Dates: start: 201211
  12. LYTOS [Concomitant]
     Indication: PROPHYLAXIS
     Route: 048
     Dates: start: 2011
  13. PRIMPERAN [Concomitant]
     Indication: PROPHYLAXIS
     Route: 048
     Dates: start: 201211
  14. GOSERELIN [Concomitant]
     Indication: PROPHYLAXIS
     Route: 058
  15. MACROGOL [Concomitant]
     Indication: PROPHYLAXIS
     Route: 048
     Dates: start: 20130614
  16. METOCLOPRAMIDE [Concomitant]
     Indication: PROPHYLAXIS
     Route: 048

REACTIONS (1)
  - Corneal perforation [Recovered/Resolved with Sequelae]
